FAERS Safety Report 19318055 (Version 2)
Quarter: 2022Q2

REPORT INFORMATION
  Report Type: Spontaneous
  Country: FR (occurrence: FR)
  Receive Date: 20210527
  Receipt Date: 20220509
  Transmission Date: 20220721
  Serious: Yes (Hospitalization)
  Sender: FDA-Public Use
  Company Number: None

PATIENT
  Age: 76 Year
  Sex: Female
  Weight: 70 kg

DRUGS (5)
  1. TRAMADOL HYDROCHLORIDE [Suspect]
     Active Substance: TRAMADOL HYDROCHLORIDE
     Indication: Anaesthesia procedure
     Dosage: UNK
     Route: 042
     Dates: start: 20210317, end: 20210317
  2. PROPOFOL [Suspect]
     Active Substance: PROPOFOL
     Indication: Anaesthesia procedure
     Dosage: UNK
     Route: 042
     Dates: start: 20210317, end: 20210317
  3. CEFAZOLIN [Suspect]
     Active Substance: CEFAZOLIN
     Indication: Anaesthesia procedure
     Dosage: UNK
     Route: 042
     Dates: start: 20210317, end: 20210317
  4. CLONAZEPAM [Suspect]
     Active Substance: CLONAZEPAM
     Indication: Anaesthesia procedure
     Dosage: UNK
     Route: 042
     Dates: start: 20210317, end: 20210317
  5. CLOBAZAM [Suspect]
     Active Substance: CLOBAZAM
     Indication: Epilepsy
     Dosage: 5 MILLIGRAM, 1/DAY
     Route: 048
     Dates: start: 20210322, end: 20210326

REACTIONS (1)
  - Hepatic cytolysis [Recovering/Resolving]

NARRATIVE: CASE EVENT DATE: 20210325
